FAERS Safety Report 9194171 (Version 1)
Quarter: 2013Q1

REPORT INFORMATION
  Report Type: Spontaneous
  Country: US (occurrence: US)
  Receive Date: 20130327
  Receipt Date: 20130327
  Transmission Date: 20140127
  Serious: No
  Sender: FDA-Public Use
  Company Number: US-B.I. PHARMACEUTICALS,INC./RIDGEFIELD-2013-BI-07558BP

PATIENT
  Age: 56 None
  Sex: Female
  Weight: 59 kg

DRUGS (2)
  1. MICARDIS HCT TABLETS [Suspect]
     Indication: HYPERTENSION
     Route: 048
     Dates: start: 2010
  2. MICARDIS HCT TABLETS [Suspect]
     Route: 048
     Dates: start: 20130305

REACTIONS (6)
  - Weight decreased [Not Recovered/Not Resolved]
  - Somnolence [Not Recovered/Not Resolved]
  - Irritability [Not Recovered/Not Resolved]
  - Epistaxis [Recovered/Resolved]
  - Mood altered [Not Recovered/Not Resolved]
  - Hypotension [Not Recovered/Not Resolved]
